FAERS Safety Report 13103590 (Version 2)
Quarter: 2017Q1

REPORT INFORMATION
  Report Type: Spontaneous
  Country: IT (occurrence: IT)
  Receive Date: 20170111
  Receipt Date: 20170124
  Transmission Date: 20170428
  Serious: Yes (Hospitalization, Other)
  Sender: FDA-Public Use
  Company Number: IT-BRISTOL-MYERS SQUIBB COMPANY-BMS-2016-112377

PATIENT
  Age: 70 Year
  Sex: Female

DRUGS (1)
  1. METFORMIN HYDROCHLORIDE. [Suspect]
     Active Substance: METFORMIN HYDROCHLORIDE
     Indication: DIABETES MELLITUS
     Dosage: UNK
     Route: 065

REACTIONS (7)
  - Hypotension [Recovered/Resolved]
  - Pancreatitis acute [Unknown]
  - Anuria [Recovered/Resolved]
  - Lactic acidosis [Recovered/Resolved]
  - Haemodialysis [Unknown]
  - Acute kidney injury [Recovered/Resolved]
  - Malaise [Recovered/Resolved]
